FAERS Safety Report 12702210 (Version 1)
Quarter: 2016Q3

REPORT INFORMATION
  Report Type: Spontaneous
  Country: US (occurrence: US)
  Receive Date: 20160831
  Receipt Date: 20160831
  Transmission Date: 20161109
  Serious: Yes (Life-Threatening)
  Sender: FDA-Public Use
  Company Number: US-LPDUSPRD-20160759

PATIENT
  Age: 43 Year
  Sex: Female

DRUGS (1)
  1. ONDANSETRON INJECTION (4420-01) [Suspect]
     Active Substance: ONDANSETRON
     Dosage: 4 MG
     Route: 042

REACTIONS (4)
  - Dizziness [Unknown]
  - Bradycardia [Unknown]
  - Syncope [Unknown]
  - Respiratory arrest [Unknown]
